FAERS Safety Report 4480767-7 (Version None)
Quarter: 2004Q4

REPORT INFORMATION
  Report Type: 
  Country: None (occurrence: None)
  Receive Date: 20041019
  Receipt Date: 20041004
  Transmission Date: 20050328
  Serious: Yes (Disabling)
  Sender: FDA-Public Use
  Company Number: 2004AC00455

PATIENT
  Age: 64 Year
  Sex: Male

DRUGS (2)
  1. BUPIVACAINE [Suspect]
     Indication: ANAESTHESIA
     Dosage: 5 ML ED
     Route: 008
  2. TRIAMCINOLONE [Suspect]
     Indication: BACK PAIN
     Dosage: 5 ML ED
     Route: 008

REACTIONS (8)
  - ABDOMINAL DISCOMFORT [None]
  - NUCLEAR MAGNETIC RESONANCE IMAGING ABNORMAL [None]
  - PAIN [None]
  - PARALYSIS [None]
  - PARAPARESIS [None]
  - SENSORY LOSS [None]
  - SPINAL CORD INFARCTION [None]
  - URINARY INCONTINENCE [None]
